FAERS Safety Report 11134577 (Version 2)
Quarter: 2015Q2

REPORT INFORMATION
  Report Type: Report from Study
  Country: US (occurrence: US)
  Receive Date: 20150525
  Receipt Date: 20150622
  Transmission Date: 20150821
  Serious: Yes (Hospitalization)
  Sender: FDA-Public Use
  Company Number: US-ROCHE-1580260

PATIENT
  Age: 57 Year
  Sex: Male

DRUGS (10)
  1. LOSARTAN POTASSIUM. [Concomitant]
     Active Substance: LOSARTAN POTASSIUM
     Route: 065
     Dates: start: 20110201
  2. TRASTUZUMAB [Suspect]
     Active Substance: TRASTUZUMAB
     Indication: METASTATIC GASTRIC CANCER
     Route: 065
     Dates: start: 20110302
  3. 5-FU [Suspect]
     Active Substance: FLUOROURACIL
     Indication: METASTATIC GASTRIC CANCER
     Route: 065
     Dates: start: 20110302
  4. METOPROLOL SUCCINATE. [Concomitant]
     Active Substance: METOPROLOL SUCCINATE
     Route: 065
     Dates: start: 20110201
  5. CISPLATIN. [Suspect]
     Active Substance: CISPLATIN
     Indication: METASTATIC GASTRIC CANCER
     Route: 065
     Dates: start: 20110302
  6. POTASSIUM CHLORIDE. [Concomitant]
     Active Substance: POTASSIUM CHLORIDE
     Route: 065
     Dates: start: 20110201
  7. METFORMIN [Concomitant]
     Active Substance: METFORMIN HYDROCHLORIDE
     Route: 065
     Dates: start: 20110201
  8. DOCETAXEL. [Suspect]
     Active Substance: DOCETAXEL
     Indication: METASTATIC GASTRIC CANCER
     Route: 065
     Dates: start: 20110302
  9. PANTOPRAZOLE [Concomitant]
     Active Substance: PANTOPRAZOLE SODIUM
     Route: 065
     Dates: start: 20110201, end: 20110330
  10. LEUCOVORIN [Suspect]
     Active Substance: LEUCOVORIN
     Indication: METASTATIC GASTRIC CANCER
     Route: 065
     Dates: start: 20110302

REACTIONS (10)
  - Dehydration [Recovered/Resolved]
  - Melaena [Unknown]
  - Anaemia [Unknown]
  - Pyrexia [Recovered/Resolved]
  - Syncope [Recovered/Resolved]
  - Decreased appetite [Unknown]
  - Oropharyngeal pain [Recovered/Resolved]
  - Fatigue [Unknown]
  - Laryngeal pain [Recovered/Resolved]
  - Upper respiratory tract infection [Unknown]

NARRATIVE: CASE EVENT DATE: 20110322
